FAERS Safety Report 9085617 (Version 1)
Quarter: 2013Q1

REPORT INFORMATION
  Report Type: Report from Study
  Country: US (occurrence: US)
  Receive Date: 20130131
  Receipt Date: 20130131
  Transmission Date: 20140127
  Serious: No
  Sender: FDA-Public Use
  Company Number: US-ABBOTT-12P-163-0993086-00

PATIENT
  Age: 47 Year
  Sex: Female

DRUGS (16)
  1. HUMIRA [Suspect]
     Indication: CROHN^S DISEASE
     Route: 058
     Dates: start: 20120715
  2. PREMPRO [Concomitant]
     Indication: MENOPAUSE
  3. CELEBREX [Concomitant]
     Indication: FIBROMYALGIA
  4. CELEBREX [Concomitant]
     Indication: ANKYLOSING SPONDYLITIS
  5. TOPROL [Concomitant]
     Indication: MITRAL VALVE PROLAPSE
  6. VITAMIN B INJECTION [Concomitant]
     Indication: PRODUCT USED FOR UNKNOWN INDICATION
  7. VITAMIN D [Concomitant]
     Indication: PRODUCT USED FOR UNKNOWN INDICATION
  8. CLARITIN [Concomitant]
     Indication: HYPERSENSITIVITY
  9. PERCOCET [Concomitant]
     Indication: PAIN
  10. DILAUDID [Concomitant]
     Indication: FIBROMYALGIA
  11. DILAUDID [Concomitant]
     Indication: ANKYLOSING SPONDYLITIS
  12. XANAX [Concomitant]
     Indication: ANXIETY
     Route: 048
  13. PHENERGAN [Concomitant]
     Indication: NAUSEA
  14. FLEXERIL [Concomitant]
     Indication: MUSCLE RELAXANT THERAPY
  15. SYNTHYROID [Concomitant]
     Indication: BASEDOW^S DISEASE
  16. NEXIUM [Concomitant]
     Indication: PROPHYLAXIS

REACTIONS (9)
  - Depression [Not Recovered/Not Resolved]
  - Nausea [Not Recovered/Not Resolved]
  - Pain [Not Recovered/Not Resolved]
  - Chest pain [Recovered/Resolved]
  - Muscular weakness [Recovered/Resolved]
  - Vision blurred [Recovered/Resolved]
  - Feeling abnormal [Recovered/Resolved]
  - Chest discomfort [Recovered/Resolved]
  - Tachycardia [Recovered/Resolved]
